FAERS Safety Report 21893056 (Version 1)
Quarter: 2023Q1

REPORT INFORMATION
  Report Type: Spontaneous
  Country: CA (occurrence: CA)
  Receive Date: 20230120
  Receipt Date: 20230120
  Transmission Date: 20230417
  Serious: Yes (Other)
  Sender: FDA-Public Use
  Company Number: CA-CELLTRION INC.-2023CA001080

PATIENT

DRUGS (1)
  1. TRUXIMA [Suspect]
     Active Substance: RITUXIMAB-ABBS
     Indication: Immune thrombocytopenia
     Dosage: 750 MG WEEKLY X 4 WEEKS (BSA: 2M2 (375MG/M2) TOTAL QUANTITY REQUESTED: 3000MG)
     Route: 042

REACTIONS (2)
  - Immune thrombocytopenia [Unknown]
  - Off label use [Unknown]
